FAERS Safety Report 16462524 (Version 1)
Quarter: 2019Q2

REPORT INFORMATION
  Report Type: Spontaneous
  Country: CO (occurrence: CO)
  Receive Date: 20190621
  Receipt Date: 20190621
  Transmission Date: 20190711
  Serious: Yes (Death, Other)
  Sender: FDA-Public Use
  Company Number: CO-TEVA-2019-CO-1065887

PATIENT
  Sex: Female

DRUGS (1)
  1. COPAXONE [Suspect]
     Active Substance: GLATIRAMER ACETATE
     Dosage: MONDAY, WEDNESDAY AND FRIDAY
     Route: 058

REACTIONS (3)
  - Cardio-respiratory arrest [Fatal]
  - Dyspnoea [Unknown]
  - Malaise [Unknown]
